FAERS Safety Report 25444928 (Version 1)
Quarter: 2025Q2

REPORT INFORMATION
  Report Type: Spontaneous
  Country: US (occurrence: US)
  Receive Date: 20250617
  Receipt Date: 20250617
  Transmission Date: 20250716
  Serious: Yes (Other)
  Sender: NOVO NORDISK
  Company Number: US-NOVOPROD-1456425

PATIENT

DRUGS (1)
  1. OZEMPIC [Suspect]
     Active Substance: SEMAGLUTIDE
     Indication: Product used for unknown indication

REACTIONS (8)
  - Loss of consciousness [Unknown]
  - Head injury [Unknown]
  - Face injury [Unknown]
  - Accidental overdose [Unknown]
  - Device malfunction [Unknown]
  - Illness [Unknown]
  - Feeding disorder [Unknown]
  - Dehydration [Unknown]
